FAERS Safety Report 14846642 (Version 1)
Quarter: 2018Q2

REPORT INFORMATION
  Report Type: Spontaneous
  Country: US (occurrence: US)
  Receive Date: 20180419
  Receipt Date: 20180419
  Transmission Date: 20180711
  Serious: Yes (Hospitalization)
  Sender: FDA-Public Use
  Company Number: None

PATIENT
  Age: 27 Year
  Sex: Male
  Weight: 69.75 kg

DRUGS (1)
  1. VIVITROL [Suspect]
     Active Substance: NALTREXONE
     Indication: ALCOHOL USE DISORDER
     Route: 030
     Dates: start: 20180206, end: 20180306

REACTIONS (8)
  - Respiratory failure [None]
  - Productive cough [None]
  - Dyspnoea [None]
  - Myalgia [None]
  - Leukocytosis [None]
  - Chest pain [None]
  - Atypical pneumonia [None]
  - Hypoxia [None]

NARRATIVE: CASE EVENT DATE: 20180309
